FAERS Safety Report 22158078 (Version 7)
Quarter: 2024Q4

REPORT INFORMATION
  Report Type: Report from Study
  Country: JP (occurrence: JP)
  Receive Date: 20230330
  Receipt Date: 20241118
  Transmission Date: 20250115
  Serious: Yes (Hospitalization)
  Sender: TAKEDA
  Company Number: JP-TAKEDA-2021TJP119308

PATIENT
  Age: 9 Year
  Sex: Male
  Weight: 22.1 kg

DRUGS (38)
  1. TEDUGLUTIDE [Suspect]
     Active Substance: TEDUGLUTIDE
     Indication: Short-bowel syndrome
     Dosage: 0.05 MILLIGRAM/KILOGRAM, QD
     Dates: start: 20211108, end: 20220913
  2. TEDUGLUTIDE [Suspect]
     Active Substance: TEDUGLUTIDE
     Dosage: 0.05 MILLIGRAM/KILOGRAM, QD
     Dates: start: 20220919, end: 20230605
  3. TEDUGLUTIDE [Suspect]
     Active Substance: TEDUGLUTIDE
     Dosage: 0.05 MILLIGRAM/KILOGRAM
  4. TEDUGLUTIDE [Suspect]
     Active Substance: TEDUGLUTIDE
  5. MIYA-BM [Concomitant]
     Active Substance: CLOSTRIDIUM BUTYRICUM SPORES STRAIN M-55
     Indication: Short-bowel syndrome
     Dosage: UNK
  6. MIYA-BM [Concomitant]
     Active Substance: CLOSTRIDIUM BUTYRICUM SPORES STRAIN M-55
     Indication: Diarrhoea
     Dosage: 0.25 GRAM, TID
  7. AMINO ACIDS\DEXTROSE\ELECTROLYTES NOS\SOYBEAN OIL\VITAMINS [Concomitant]
     Active Substance: AMINO ACIDS\DEXTROSE\ELECTROLYTES NOS\SOYBEAN OIL\VITAMINS
     Indication: Short-bowel syndrome
     Dosage: UNK
  8. AMINO ACIDS\DEXTROSE\ELECTROLYTES NOS\SOYBEAN OIL\VITAMINS [Concomitant]
     Active Substance: AMINO ACIDS\DEXTROSE\ELECTROLYTES NOS\SOYBEAN OIL\VITAMINS
     Indication: Feeding disorder
     Dosage: 1.5 DOSAGE FORM, BID
  9. ZINC [Concomitant]
     Active Substance: ZINC
     Indication: Short-bowel syndrome
     Dosage: UNK
  10. ZINC [Concomitant]
     Active Substance: ZINC
     Indication: Hypozincaemia
     Dosage: 25 MILLIGRAM, BID
  11. URSO [Concomitant]
     Active Substance: URSODIOL
     Indication: Short-bowel syndrome
     Dosage: UNK
  12. URSO [Concomitant]
     Active Substance: URSODIOL
     Indication: Cholestasis
     Dosage: 30 MILLIGRAM, TID
  13. SODIUM FERROUS CITRATE [Concomitant]
     Active Substance: SODIUM FERROUS CITRATE
     Indication: Short-bowel syndrome
     Dosage: UNK
  14. SODIUM CHLORIDE [Concomitant]
     Active Substance: SODIUM CHLORIDE
     Indication: Short-bowel syndrome
     Dosage: UNK
  15. PN-TWIN NO. 2 [Concomitant]
     Indication: Short-bowel syndrome
     Dosage: UNK
  16. CYANOCOBALAMIN\PYRIDOXAMINE HYDROCHLORIDE\THIAMINE HYDROCHLORIDE [Concomitant]
     Active Substance: CYANOCOBALAMIN\PYRIDOXAMINE HYDROCHLORIDE\THIAMINE HYDROCHLORIDE
     Indication: Short-bowel syndrome
     Dosage: UNK
  17. MINERIC 5 [Concomitant]
     Indication: Short-bowel syndrome
     Dosage: UNK
  18. HEPARIN SODIUM [Concomitant]
     Active Substance: HEPARIN SODIUM
     Indication: Short-bowel syndrome
     Dosage: UNK
  19. SOYBEAN OIL [Concomitant]
     Active Substance: SOYBEAN OIL
     Indication: Short-bowel syndrome
     Dosage: UNK
  20. AMINO ACIDS\DEXTROSE\ELECTROLYTES NOS\MINERALS\VITAMINS [Concomitant]
     Active Substance: AMINO ACIDS\DEXTROSE\ELECTROLYTES NOS\MINERALS\VITAMINS
     Indication: Short-bowel syndrome
     Dosage: UNK
  21. GLYCOSAMINOGLYCANS [Concomitant]
     Active Substance: GLYCOSAMINOGLYCANS
     Dosage: UNK
  22. LIDOCAINE [Concomitant]
     Active Substance: LIDOCAINE
     Dosage: UNK
  23. AZUNOL [Concomitant]
     Dosage: UNK
  24. POLARAMINE [Concomitant]
     Active Substance: DEXCHLORPHENIRAMINE MALEATE
     Dosage: UNK
  25. SOLACET D [Concomitant]
     Indication: Short-bowel syndrome
     Dosage: UNK
  26. PARAFFIN [Concomitant]
     Active Substance: PARAFFIN
     Dosage: UNK
  27. CEFMETAZOLE [Concomitant]
     Active Substance: CEFMETAZOLE
     Dosage: UNK
  28. GASTER [Concomitant]
     Active Substance: FAMOTIDINE
     Dosage: UNK
  29. UROKINASE [Concomitant]
     Active Substance: UROKINASE
     Dosage: UNK
  30. PROPOFOL [Concomitant]
     Active Substance: PROPOFOL
     Dosage: UNK
  31. REMIFENTANIL [Concomitant]
     Active Substance: REMIFENTANIL
     Dosage: UNK
  32. FENTANYL [Concomitant]
     Active Substance: FENTANYL
     Dosage: UNK
  33. ROCURONIUM BROMIDE [Concomitant]
     Active Substance: ROCURONIUM BROMIDE
     Dosage: UNK
  34. ATROPINE SULFATE [Concomitant]
     Active Substance: ATROPINE SULFATE
     Dosage: UNK
  35. BRIDION [Concomitant]
     Active Substance: SUGAMMADEX
     Dosage: UNK
  36. CIZANARINE N [Concomitant]
     Indication: Short-bowel syndrome
     Dosage: UNK
  37. VEEN D [Concomitant]
     Active Substance: CALCIUM CHLORIDE\DEXTROSE\POTASSIUM CHLORIDE\SODIUM ACETATE\SODIUM CHLORIDE
     Indication: Short-bowel syndrome
     Dosage: UNK
  38. ELEJECT [Concomitant]
     Indication: Short-bowel syndrome
     Dosage: UNK

REACTIONS (4)
  - Central venous catheterisation [Recovered/Resolved]
  - Cholelithiasis [Not Recovered/Not Resolved]
  - Miliaria [Recovering/Resolving]
  - Puncture site bruise [Recovered/Resolved]

NARRATIVE: CASE EVENT DATE: 20211115
